FAERS Safety Report 11702092 (Version 1)
Quarter: 2015Q4

REPORT INFORMATION
  Report Type: Report from Study
  Country: US (occurrence: US)
  Receive Date: 20151105
  Receipt Date: 20151105
  Transmission Date: 20160304
  Serious: Yes (Other)
  Sender: FDA-Public Use
  Company Number: US-ABBVIE-15K-163-1492841-00

PATIENT
  Age: 28 Year
  Sex: Female
  Weight: 52.21 kg

DRUGS (3)
  1. HUMIRA [Suspect]
     Active Substance: ADALIMUMAB
     Indication: ANKYLOSING SPONDYLITIS
     Route: 058
     Dates: start: 2010, end: 2014
  2. HUMIRA [Suspect]
     Active Substance: ADALIMUMAB
     Route: 058
     Dates: start: 2014
  3. METHOTREXATE [Concomitant]
     Active Substance: METHOTREXATE
     Indication: CROHN^S DISEASE
     Dates: start: 2006

REACTIONS (4)
  - Joint range of motion decreased [Recovered/Resolved]
  - Intestinal obstruction [Recovering/Resolving]
  - Procedural pain [Not Recovered/Not Resolved]
  - Intestinal stenosis [Recovering/Resolving]

NARRATIVE: CASE EVENT DATE: 2010
